FAERS Safety Report 6470812-1 (Version None)
Quarter: 2009Q4

REPORT INFORMATION
  Report Type: 
  Country: None (occurrence: None)
  Receive Date: 20091203
  Receipt Date: 20090326
  Transmission Date: 20100525
  Serious: No
  Sender: FDA-Public Use
  Company Number: US-ABBOTT-09P-163-0564821-00

PATIENT
  Sex: Female
  Weight: 81.72 kg

DRUGS (4)
  1. MERIDIA [Suspect]
     Indication: WEIGHT CONTROL
     Route: 048
     Dates: start: 20081001, end: 20090315
  2. MERIDIA [Suspect]
     Route: 048
     Dates: start: 20090316
  3. ASPIRIN [Concomitant]
     Indication: DRUG USE FOR UNKNOWN INDICATION
     Route: 048
  4. ZYRTEC [Concomitant]
     Indication: RHINITIS

REACTIONS (3)
  - DRUG EFFECT DECREASED [None]
  - HUNGER [None]
  - ROSACEA [None]
